FAERS Safety Report 9298504 (Version 2)
Quarter: 2013Q2

REPORT INFORMATION
  Report Type: Spontaneous
  Country: UA (occurrence: UA)
  Receive Date: 20130520
  Receipt Date: 20130603
  Transmission Date: 20140414
  Serious: Yes (Death)
  Sender: FDA-Public Use
  Company Number: UA-ASTRAZENECA-2013SE34247

PATIENT
  Age: 51 Year
  Sex: Female

DRUGS (5)
  1. LIDOCAINE HYDROCHLORIDE [Suspect]
  2. CEFTRIAXONE [Suspect]
  3. NOVOCAINE [Suspect]
  4. MEFENAMIC ACID [Concomitant]
     Indication: OROPHARYNGEAL PAIN
  5. MEFENAMIC ACID [Concomitant]
     Indication: MALAISE

REACTIONS (2)
  - Anaphylactic shock [Fatal]
  - Medication error [Fatal]
